FAERS Safety Report 8331663-6 (Version None)
Quarter: 2012Q2

REPORT INFORMATION
  Report Type: 
  Country: None (occurrence: None)
  Receive Date: 20120502
  Receipt Date: 20120322
  Transmission Date: 20120825
  Serious: No
  Sender: FDA-Public Use
  Company Number: US-ASTRAZENECA-2012SE19863

PATIENT
  Sex: Female

DRUGS (7)
  1. BUDESONIDE [Suspect]
     Indication: COLITIS MICROSCOPIC
     Dosage: TOTAL DAILY DOSE: 3 MG TID
     Route: 048
  2. BUDESONIDE [Suspect]
     Indication: DIARRHOEA
     Dosage: TOTAL DAILY DOSE: 3 MG TID
     Route: 048
  3. BUDESONIDE [Suspect]
     Indication: DEHYDRATION
     Dosage: TOTAL DAILY DOSE: 3 MG TID
     Route: 048
  4. BUDESONIDE [Suspect]
     Dosage: GENERIC
     Route: 048
  5. BUDESONIDE [Suspect]
     Dosage: GENERIC
     Route: 048
  6. BUDESONIDE [Suspect]
     Dosage: GENERIC
     Route: 048
  7. TOPROL-XL [Suspect]
     Indication: HYPERTENSION
     Route: 048

REACTIONS (5)
  - OFF LABEL USE [None]
  - DYSPEPSIA [None]
  - DRUG HYPERSENSITIVITY [None]
  - BURNING SENSATION [None]
  - HYPERTENSION [None]
